FAERS Safety Report 14356678 (Version 1)
Quarter: 2018Q1

REPORT INFORMATION
  Report Type: Spontaneous
  Country: AT (occurrence: AT)
  Receive Date: 20180105
  Receipt Date: 20180105
  Transmission Date: 20180509
  Serious: Yes (Hospitalization, Other)
  Sender: FDA-Public Use
  Company Number: AT-MYLANLABS-2018M1000582

PATIENT
  Age: 58 Year
  Sex: Male
  Weight: 122.7 kg

DRUGS (11)
  1. CIPRALEX [Suspect]
     Active Substance: ESCITALOPRAM OXALATE
     Dosage: 15 MG, QD
     Route: 048
     Dates: start: 20150324, end: 201601
  2. PANTOPRAZOL [Concomitant]
     Active Substance: PANTOPRAZOLE SODIUM
     Indication: PRODUCT USED FOR UNKNOWN INDICATION
     Dosage: 40 MG, QD
     Route: 065
     Dates: start: 201405
  3. PREGABALIN. [Suspect]
     Active Substance: PREGABALIN
     Indication: PRODUCT USED FOR UNKNOWN INDICATION
     Dosage: 300 MG, QD
     Route: 065
     Dates: start: 20160209, end: 20160210
  4. CIPRALEX [Suspect]
     Active Substance: ESCITALOPRAM OXALATE
     Indication: PRODUCT USED FOR UNKNOWN INDICATION
     Dosage: 10 MG, QD
     Route: 048
     Dates: start: 201601
  5. PREGABALIN. [Suspect]
     Active Substance: PREGABALIN
     Dosage: 150 MG, QD
     Route: 065
  6. PREGABALIN. [Suspect]
     Active Substance: PREGABALIN
     Dosage: 450 MG, QD
     Route: 065
     Dates: start: 201601, end: 20160207
  7. RISPERIDONE. [Suspect]
     Active Substance: RISPERIDONE
     Indication: PRODUCT USED FOR UNKNOWN INDICATION
     Dosage: 2 MG, QD
     Route: 065
     Dates: start: 20141028, end: 20160204
  8. PREGABALIN. [Suspect]
     Active Substance: PREGABALIN
     Dosage: 375 MG, QD
     Route: 065
     Dates: start: 20160208, end: 20160208
  9. PREGABALIN. [Suspect]
     Active Substance: PREGABALIN
     Dosage: 750 MG, QD
     Route: 048
     Dates: start: 20150319, end: 201601
  10. TOPIRAMATE. [Suspect]
     Active Substance: TOPIRAMATE
     Indication: PRODUCT USED FOR UNKNOWN INDICATION
     Dosage: 25 MG, QD
     Route: 048
     Dates: start: 201601, end: 20160216
  11. TOPIRAMATE. [Suspect]
     Active Substance: TOPIRAMATE
     Dosage: 100 MG, QD
     Route: 048
     Dates: start: 20150309, end: 201601

REACTIONS (7)
  - Intention tremor [Not Recovered/Not Resolved]
  - Fatigue [Not Recovered/Not Resolved]
  - Tremor [Not Recovered/Not Resolved]
  - Resting tremor [Not Recovered/Not Resolved]
  - Sedation [Unknown]
  - Social avoidant behaviour [Not Recovered/Not Resolved]
  - Lethargy [Not Recovered/Not Resolved]

NARRATIVE: CASE EVENT DATE: 201504
